FAERS Safety Report 14153535 (Version 2)
Quarter: 2018Q1

REPORT INFORMATION
  Report Type: Spontaneous
  Country: US (occurrence: US)
  Receive Date: 20171102
  Receipt Date: 20180201
  Transmission Date: 20180508
  Serious: No
  Sender: FDA-Public Use
  Company Number: US-SA-2017SA143784

PATIENT
  Age: 73 Year
  Sex: Female

DRUGS (5)
  1. LORAZEPAM. [Concomitant]
     Active Substance: LORAZEPAM
     Indication: ANXIETY
     Route: 065
  2. PRALUENT [Suspect]
     Active Substance: ALIROCUMAB
     Indication: BLOOD CHOLESTEROL INCREASED
     Route: 058
     Dates: start: 20170726
  3. GABAPENTIN. [Concomitant]
     Active Substance: GABAPENTIN
     Indication: GUILLAIN-BARRE SYNDROME
     Dosage: DOSE: 300 X 3
     Route: 065
     Dates: start: 201504
  4. OXYCODONE [Concomitant]
     Active Substance: OXYCODONE
     Indication: GUILLAIN-BARRE SYNDROME
     Route: 065
     Dates: start: 201504
  5. ALIROCUMAB PREFILLED PEN [Suspect]
     Active Substance: ALIROCUMAB
     Indication: BLOOD CHOLESTEROL INCREASED
     Dates: start: 20170726

REACTIONS (4)
  - Pain in extremity [Recovering/Resolving]
  - Condition aggravated [Recovering/Resolving]
  - Influenza like illness [Not Recovered/Not Resolved]
  - Nasopharyngitis [Not Recovered/Not Resolved]

NARRATIVE: CASE EVENT DATE: 20170727
